FAERS Safety Report 15976415 (Version 2)
Quarter: 2019Q1

REPORT INFORMATION
  Report Type: Spontaneous
  Country: JP (occurrence: JP)
  Receive Date: 20190218
  Receipt Date: 20190318
  Transmission Date: 20190418
  Serious: Yes (Hospitalization)
  Sender: FDA-Public Use
  Company Number: JP-JNJFOC-20170223013

PATIENT
  Age: 65 Year
  Sex: Male
  Weight: 90 kg

DRUGS (19)
  1. XARELTO [Concomitant]
     Active Substance: RIVAROXABAN
     Route: 048
     Dates: start: 20130927
  2. DAIKENCHUTO [Concomitant]
     Active Substance: HERBALS
     Route: 048
     Dates: start: 20130927
  3. GASCON [Concomitant]
     Active Substance: DIMETHICONE
     Route: 048
     Dates: start: 20130927
  4. CRESTOR [Concomitant]
     Active Substance: ROSUVASTATIN CALCIUM
     Route: 048
     Dates: start: 20151001
  5. DEPAS (ETIZOLAM) [Concomitant]
     Active Substance: ETIZOLAM
     Dosage: BEFORE 2009
     Route: 048
  6. CANAGLU [Suspect]
     Active Substance: CANAGLIFLOZIN
     Indication: TYPE 2 DIABETES MELLITUS
     Route: 048
     Dates: start: 20180515
  7. TENELIA [Concomitant]
     Active Substance: TENELIGLIPTIN
     Indication: TYPE 2 DIABETES MELLITUS
     Route: 048
     Dates: start: 20180515
  8. BRONUCK [Concomitant]
     Active Substance: BROMFENAC SODIUM
     Dosage: STARTED BEFORE ADMINISTRATION OF CANAGLIFLOZIN
     Route: 031
  9. MAGMITT [Concomitant]
     Active Substance: MAGNESIUM OXIDE
     Route: 048
     Dates: start: 20130927
  10. PURSENNID [Concomitant]
     Active Substance: SENNOSIDES A AND B
     Route: 048
     Dates: start: 20130927
  11. TENELIA [Concomitant]
     Active Substance: TENELIGLIPTIN
     Indication: TYPE 2 DIABETES MELLITUS
     Route: 048
     Dates: start: 20151001
  12. CANAGLU [Suspect]
     Active Substance: CANAGLIFLOZIN
     Indication: TYPE 2 DIABETES MELLITUS
     Route: 048
     Dates: start: 20160204
  13. SANCOBA [Concomitant]
     Active Substance: CYANOCOBALAMIN
     Dosage: STARTED BEFORE ADMINISTRATION OF CANAGLIFLOZIN
     Route: 031
  14. TAFLUPROST [Concomitant]
     Active Substance: TAFLUPROST
     Dosage: STARTED BEFORE THE ADMINISTRATION OF CANAGLIFLOZIN
     Route: 031
  15. GASTER [Concomitant]
     Active Substance: FAMOTIDINE
     Dosage: STARTED BEFORE 2009
     Route: 048
  16. XARELTO [Concomitant]
     Active Substance: RIVAROXABAN
     Route: 048
     Dates: start: 20180601
  17. APIDRA [Concomitant]
     Active Substance: INSULIN GLULISINE
     Indication: TYPE 2 DIABETES MELLITUS
     Route: 051
     Dates: start: 20140403
  18. APIDRA [Concomitant]
     Active Substance: INSULIN GLULISINE
     Indication: TYPE 2 DIABETES MELLITUS
     Route: 051
     Dates: start: 20160616
  19. DIQUAS [Concomitant]
     Active Substance: DIQUAFOSOL TETRASODIUM
     Dosage: STARTED BEFORE ADMINISTRATION OF CANAGLIFLOZIN
     Route: 031

REACTIONS (3)
  - Nasopharyngitis [Recovered/Resolved]
  - Dermal cyst [Recovered/Resolved]
  - Angina pectoris [Recovering/Resolving]

NARRATIVE: CASE EVENT DATE: 20170209
